FAERS Safety Report 5154107-4 (Version None)
Quarter: 2006Q4

REPORT INFORMATION
  Report Type: 
  Country: None (occurrence: None)
  Receive Date: 20061120
  Receipt Date: 20061113
  Transmission Date: 20070319
  Serious: Yes (Hospitalization, Other)
  Sender: FDA-Public Use
  Company Number: US-MERCK-0611USA04433

PATIENT
  Age: 82 Year
  Sex: Male

DRUGS (2)
  1. JANUVIA [Suspect]
     Route: 065
     Dates: start: 20060101, end: 20061101
  2. INSULIN [Concomitant]
     Route: 065

REACTIONS (1)
  - BLOOD GLUCOSE DECREASED [None]
